FAERS Safety Report 12574828 (Version 1)
Quarter: 2016Q3

REPORT INFORMATION
  Report Type: Spontaneous
  Country: US (occurrence: US)
  Receive Date: 20160720
  Receipt Date: 20160720
  Transmission Date: 20161109
  Serious: No
  Sender: FDA-Public Use
  Company Number: US-ASTELLAS-2015US029668

PATIENT
  Sex: Female

DRUGS (1)
  1. VESICARE [Suspect]
     Active Substance: SOLIFENACIN SUCCINATE
     Indication: BLADDER IRRITATION
     Route: 065
     Dates: start: 20150811, end: 20150831

REACTIONS (2)
  - Vulvovaginal burning sensation [Recovered/Resolved]
  - Nocturia [Not Recovered/Not Resolved]
